FAERS Safety Report 8379381-2 (Version None)
Quarter: 2012Q2

REPORT INFORMATION
  Report Type: 
  Country: None (occurrence: None)
  Receive Date: 20120523
  Receipt Date: 20120522
  Transmission Date: 20120825
  Serious: Yes (Death, Other)
  Sender: FDA-Public Use
  Company Number: PHHY2012NL025030

PATIENT
  Sex: Female

DRUGS (4)
  1. ZOMETA [Suspect]
     Indication: OSTEOPOROSIS
     Dosage: 4 MG/100 ML
     Route: 042
  2. ZOMETA [Suspect]
     Dosage: 4 MG/100 ML
     Route: 042
     Dates: start: 20101210
  3. ZOMETA [Suspect]
     Dosage: 4 MG/100 ML
     Route: 042
     Dates: start: 20120206
  4. ZOMETA [Suspect]
     Dosage: 4 MG/100 ML
     Route: 042
     Dates: start: 20120316

REACTIONS (4)
  - MALAISE [None]
  - DEATH [None]
  - CONCOMITANT DISEASE PROGRESSION [None]
  - BREAST CANCER METASTATIC [None]
